FAERS Safety Report 16390511 (Version 1)
Quarter: 2019Q2

REPORT INFORMATION
  Report Type: Spontaneous
  Country: US (occurrence: US)
  Receive Date: 20190604
  Receipt Date: 20190604
  Transmission Date: 20190711
  Serious: No
  Sender: FDA-Public Use
  Company Number: US-PTC THERAPEUTICS, INC.-US-2019PTC000696

PATIENT
  Sex: Male

DRUGS (1)
  1. EMFLAZA [Suspect]
     Active Substance: DEFLAZACORT
     Indication: DUCHENNE MUSCULAR DYSTROPHY
     Dosage: 4 ML, SATURDAY AND SUNDAY
     Route: 048
     Dates: start: 20160601

REACTIONS (4)
  - Taste disorder [Unknown]
  - Logorrhoea [Unknown]
  - Dysphagia [Unknown]
  - Off label use [Unknown]
